FAERS Safety Report 5242298-6 (Version None)
Quarter: 2007Q1

REPORT INFORMATION
  Report Type: 
  Country: None (occurrence: None)
  Receive Date: 20070214
  Receipt Date: 20070202
  Transmission Date: 20070707
  Serious: Yes (Hospitalization)
  Sender: FDA-Public Use
  Company Number: 2007BI002543

PATIENT
  Age: 64 Year
  Sex: Male
  Weight: 93.8946 kg

DRUGS (1)
  1. AVONEX [Suspect]
     Indication: MULTIPLE SCLEROSIS
     Dosage: 30 UG; QW; IM
     Route: 030
     Dates: start: 20001001

REACTIONS (8)
  - BEDRIDDEN [None]
  - DECREASED ACTIVITY [None]
  - DIABETES MELLITUS [None]
  - HYPERTENSION [None]
  - MOVEMENT DISORDER [None]
  - MULTIPLE SCLEROSIS RELAPSE [None]
  - VISUAL ACUITY REDUCED [None]
  - WEIGHT DECREASED [None]
